FAERS Safety Report 20942602 (Version 1)
Quarter: 2022Q2

REPORT INFORMATION
  Report Type: Spontaneous
  Country: US (occurrence: None)
  Receive Date: 20220610
  Receipt Date: 20220610
  Transmission Date: 20220721
  Serious: Yes (Hospitalization, Other)
  Sender: FDA-Public Use
  Company Number: US-Hikma Pharmaceuticals USA Inc.-US-H14001-22-01428

PATIENT
  Age: 33 Year
  Sex: Male

DRUGS (1)
  1. METHAMPHETAMINE [Suspect]
     Active Substance: METHAMPHETAMINE
     Indication: Product used for unknown indication
     Dosage: UNKNOWN
     Route: 065

REACTIONS (12)
  - Hyperthermia [Unknown]
  - Mental status changes [Unknown]
  - Hyperhidrosis [Unknown]
  - Mydriasis [Unknown]
  - Hyperkalaemia [Unknown]
  - Hypoglycaemia [Unknown]
  - Unresponsive to stimuli [Unknown]
  - Hypertension [Unknown]
  - Tachycardia [Unknown]
  - Toxicity to various agents [Unknown]
  - Seizure [Recovered/Resolved]
  - Overdose [Unknown]
